FAERS Safety Report 5178892-0 (Version None)
Quarter: 2006Q4

REPORT INFORMATION
  Report Type: 
  Country: None (occurrence: None)
  Receive Date: 20061208
  Receipt Date: 20061127
  Transmission Date: 20070319
  Serious: No
  Sender: FDA-Public Use
  Company Number: US-2006-033732

PATIENT
  Age: 30 Year
  Sex: Female
  Weight: 104 kg

DRUGS (2)
  1. MIRENA [Suspect]
     Indication: CONTRACEPTION
     Dosage: 20 UG/DAY, CONT, INTRA-UTERINE
     Route: 015
     Dates: start: 20040101
  2. YAZ [Suspect]
     Indication: OVARIAN CYST
     Dosage: 1 TAB(S), 1X/DAY, ORAL
     Route: 048

REACTIONS (2)
  - FATIGUE [None]
  - OVARIAN CYST [None]
